FAERS Safety Report 18462819 (Version 1)
Quarter: 2020Q4

REPORT INFORMATION
  Report Type: Spontaneous
  Country: FR (occurrence: FR)
  Receive Date: 20201104
  Receipt Date: 20201104
  Transmission Date: 20210114
  Serious: Yes (Hospitalization)
  Sender: FDA-Public Use
  Company Number: FR-PFIZER INC-2020424303

PATIENT
  Age: 86 Year
  Sex: Female
  Weight: 68 kg

DRUGS (5)
  1. BETASERC [Concomitant]
     Active Substance: BETAHISTINE
     Dosage: 2 DF, 1X/DAY
     Route: 048
  2. LOXEN L P [Concomitant]
     Active Substance: NICARDIPINE HYDROCHLORIDE
     Dosage: 1 DF, 1X/DAY
     Route: 048
  3. SUTENT [Suspect]
     Active Substance: SUNITINIB MALATE
     Indication: METASTASES TO LUNG
     Dosage: 1 DF, 1X/DAY
     Route: 048
     Dates: start: 201906, end: 20200205
  4. NEBIVOLOL. [Concomitant]
     Active Substance: NEBIVOLOL
     Dosage: 1 DF, 1X/DAY
     Route: 048
  5. MONOPROST [Concomitant]
     Active Substance: LATANOPROST
     Dosage: UNK
     Route: 047

REACTIONS (5)
  - Deep vein thrombosis [Not Recovered/Not Resolved]
  - Product use in unapproved indication [Unknown]
  - Thrombocytopenia [Recovering/Resolving]
  - Lymphopenia [Recovering/Resolving]
  - Off label use [Unknown]

NARRATIVE: CASE EVENT DATE: 20200205
